FAERS Safety Report 18435991 (Version 1)
Quarter: 2020Q4

REPORT INFORMATION
  Report Type: Spontaneous
  Country: US (occurrence: US)
  Receive Date: 20201028
  Receipt Date: 20201028
  Transmission Date: 20210114
  Serious: Yes (Hospitalization)
  Sender: FDA-Public Use
  Company Number: None

PATIENT
  Sex: Male
  Weight: 116.5 kg

DRUGS (7)
  1. CISPLATIN. [Suspect]
     Active Substance: CISPLATIN
  2. CYANOOBALAMIN- VIT D [Concomitant]
  3. LOPERAMID [Concomitant]
     Active Substance: LOPERAMIDE
  4. OCYCODONE [Concomitant]
  5. CARVEDILOL. [Concomitant]
     Active Substance: CARVEDILOL
  6. NEULASTA [Suspect]
     Active Substance: PEGFILGRASTIM
  7. GEMCITABINE HYDROCHLORIDE 6176MG [Suspect]
     Active Substance: GEMCITABINE HYDROCHLORIDE

REACTIONS (11)
  - Emphysematous pyelonephritis [None]
  - Rhinorrhoea [None]
  - Pulmonary embolism [None]
  - Cough [None]
  - Nausea [None]
  - Decreased appetite [None]
  - Pyrexia [None]
  - Malaise [None]
  - Dyspnoea [None]
  - Retching [None]
  - Dysphagia [None]

NARRATIVE: CASE EVENT DATE: 20201012
